FAERS Safety Report 25723443 (Version 4)
Quarter: 2025Q3

REPORT INFORMATION
  Report Type: Spontaneous
  Country: JP (occurrence: JP)
  Receive Date: 20250825
  Receipt Date: 20250916
  Transmission Date: 20251021
  Serious: Yes (Other)
  Sender: PFIZER
  Company Number: JP-PFIZER INC-PV202500080568

PATIENT
  Age: 63 Year
  Sex: Male

DRUGS (13)
  1. LORBRENA [Suspect]
     Active Substance: LORLATINIB
     Indication: Lung neoplasm malignant
     Route: 048
  2. LORBRENA [Suspect]
     Active Substance: LORLATINIB
     Route: 048
  3. LORBRENA [Suspect]
     Active Substance: LORLATINIB
     Route: 048
  4. LORBRENA [Suspect]
     Active Substance: LORLATINIB
     Route: 048
  5. LORBRENA [Suspect]
     Active Substance: LORLATINIB
     Route: 048
  6. LORBRENA [Suspect]
     Active Substance: LORLATINIB
     Route: 048
  7. LORBRENA [Suspect]
     Active Substance: LORLATINIB
     Route: 048
  8. LORBRENA [Suspect]
     Active Substance: LORLATINIB
     Route: 048
  9. LORBRENA [Suspect]
     Active Substance: LORLATINIB
     Route: 048
  10. LORBRENA [Suspect]
     Active Substance: LORLATINIB
     Route: 048
  11. LORBRENA [Suspect]
     Active Substance: LORLATINIB
     Route: 048
  12. LORBRENA [Suspect]
     Active Substance: LORLATINIB
     Route: 048
  13. LORBRENA [Suspect]
     Active Substance: LORLATINIB
     Route: 048

REACTIONS (9)
  - Thrombophlebitis migrans [Unknown]
  - Neuropathy peripheral [Unknown]
  - Cognitive disorder [Recovered/Resolved]
  - Disturbance in attention [Unknown]
  - Affective disorder [Unknown]
  - Hypertriglyceridaemia [Recovering/Resolving]
  - Hypercholesterolaemia [Unknown]
  - Nervous system disorder [Unknown]
  - Dyslipidaemia [Unknown]
